FAERS Safety Report 5948601-3 (Version None)
Quarter: 2008Q4

REPORT INFORMATION
  Report Type: 
  Country: None (occurrence: None)
  Receive Date: 20081111
  Receipt Date: 20081105
  Transmission Date: 20090506
  Serious: Yes (Death)
  Sender: FDA-Public Use
  Company Number: JP-JNJFOC-20070703507

PATIENT
  Sex: Male
  Weight: 44 kg

DRUGS (18)
  1. CLADRIBINE [Suspect]
     Dosage: CYCLE 3
     Route: 042
  2. CLADRIBINE [Suspect]
     Dosage: CYCLE 2
     Route: 042
  3. CLADRIBINE [Suspect]
     Indication: MANTLE CELL LYMPHOMA
     Dosage: CYCLE 1
     Route: 042
  4. NOVANTRONE [Suspect]
     Dosage: CYCLE 3
     Route: 041
  5. NOVANTRONE [Suspect]
     Dosage: CYCLE 2
     Route: 041
  6. NOVANTRONE [Suspect]
     Indication: MANTLE CELL LYMPHOMA
     Dosage: CYCLE 1
     Route: 041
  7. COTRIM [Suspect]
     Indication: INFECTION SUSCEPTIBILITY INCREASED
     Route: 048
  8. COTRIM [Suspect]
     Indication: PROPHYLAXIS
     Route: 048
  9. RITUXAN [Concomitant]
     Dosage: CYCLE 3
     Route: 041
  10. RITUXAN [Concomitant]
     Dosage: CYCLE 2
     Route: 041
  11. RITUXAN [Concomitant]
     Indication: MANTLE CELL LYMPHOMA
     Dosage: CYCLE 1
     Route: 041
  12. LASIX [Concomitant]
     Indication: RENAL IMPAIRMENT
     Route: 048
  13. ISCOTIN [Concomitant]
     Indication: TUBERCULOSIS
     Route: 048
  14. PYDOXAL [Concomitant]
     Indication: TUBERCULOSIS
     Route: 048
  15. BLOPRESS [Concomitant]
     Indication: HYPERTENSION
     Route: 048
  16. GRAN [Concomitant]
     Indication: INFECTION SUSCEPTIBILITY INCREASED
     Route: 058
  17. MAXIPIME [Concomitant]
     Indication: PYREXIA
     Route: 041
  18. MEROPEN [Concomitant]
     Indication: PYREXIA
     Route: 041

REACTIONS (10)
  - DECREASED ACTIVITY [None]
  - DECREASED APPETITE [None]
  - DISORIENTATION [None]
  - DISSEMINATED CYTOMEGALOVIRAL INFECTION [None]
  - HYPOALBUMINAEMIA [None]
  - PANCYTOPENIA [None]
  - PYREXIA [None]
  - RENAL IMPAIRMENT [None]
  - RESPIRATORY FAILURE [None]
  - URINE OUTPUT DECREASED [None]
